FAERS Safety Report 18807648 (Version 1)
Quarter: 2021Q1

REPORT INFORMATION
  Report Type: Spontaneous
  Country: ES (occurrence: ES)
  Receive Date: 20210129
  Receipt Date: 20210129
  Transmission Date: 20210419
  Serious: Yes (Other)
  Sender: FDA-Public Use
  Company Number: ES-SUN PHARMACEUTICAL INDUSTRIES LTD-2021RR-278381

PATIENT
  Age: 58 Year
  Sex: Female

DRUGS (5)
  1. AMOXICILINA (108A) [Concomitant]
     Active Substance: AMOXICILLIN
     Indication: OESOPHAGITIS
     Dosage: 1 GRAM, DAILY
     Route: 048
     Dates: start: 20201026
  2. OMEPRAZOLE. [Interacting]
     Active Substance: OMEPRAZOLE
     Indication: OESOPHAGITIS
     Dosage: 40 MILLIGRAM, BID
     Route: 048
     Dates: start: 20201026, end: 20201027
  3. TEGRETOL [Interacting]
     Active Substance: CARBAMAZEPINE
     Indication: EPILEPSY
     Dosage: 400 MILLIGRAM, TID
     Route: 048
     Dates: start: 20150922
  4. CLARITHROMYCIN. [Suspect]
     Active Substance: CLARITHROMYCIN
     Indication: OESOPHAGITIS
     Dosage: 500 MILLIGRAM, DAILY
     Route: 048
     Dates: start: 20201026, end: 20201027
  5. LAMICTAL 100 MG COMPRIMIDOS MASTICABLES/DISPERSABLES , 56 COMPRIMIDOS [Concomitant]
     Indication: EPILEPSY
     Dosage: 300 MILLIGRAM, DAILY
     Route: 048

REACTIONS (3)
  - Nausea [Recovered/Resolved]
  - Balance disorder [Recovered/Resolved]
  - Vomiting [Recovered/Resolved]

NARRATIVE: CASE EVENT DATE: 20201027
